FAERS Safety Report 15516450 (Version 1)
Quarter: 2018Q4

REPORT INFORMATION
  Report Type: Spontaneous
  Country: US (occurrence: US)
  Receive Date: 20181017
  Receipt Date: 20181017
  Transmission Date: 20190205
  Serious: Yes (Hospitalization, Other)
  Sender: FDA-Public Use
  Company Number: US-ELI_LILLY_AND_COMPANY-US201810003559

PATIENT
  Sex: Male

DRUGS (6)
  1. HUMULIN R [Suspect]
     Active Substance: INSULIN HUMAN
     Indication: DIABETES MELLITUS
     Dosage: UNK, UNKNOWN
     Route: 058
     Dates: start: 2015
  2. MEDROL [Concomitant]
     Active Substance: METHYLPREDNISOLONE
     Indication: BACK INJURY
  3. XARELTO [Concomitant]
     Active Substance: RIVAROXABAN
     Indication: ATRIAL FIBRILLATION
  4. SOTALOL. [Concomitant]
     Active Substance: SOTALOL
     Indication: ATRIAL FIBRILLATION
  5. LOSARTAN. [Concomitant]
     Active Substance: LOSARTAN
     Indication: RENAL DISORDER
  6. LIPITOR [Concomitant]
     Active Substance: ATORVASTATIN CALCIUM
     Indication: BLOOD CHOLESTEROL INCREASED

REACTIONS (18)
  - Sleep apnoea syndrome [Unknown]
  - Blindness unilateral [Unknown]
  - Blood glucose decreased [Unknown]
  - Intentional product misuse [Unknown]
  - Pollakiuria [Unknown]
  - Product dose omission [Unknown]
  - Blood glucose increased [Unknown]
  - Blood glucose increased [Recovering/Resolving]
  - Visual field defect [Unknown]
  - Fall [Unknown]
  - Blood glucose increased [Unknown]
  - Cerebrovascular accident [Unknown]
  - Atrial fibrillation [Unknown]
  - Hyperhidrosis [Unknown]
  - Back injury [Unknown]
  - Gait disturbance [Unknown]
  - Weight increased [Unknown]
  - Glycosylated haemoglobin increased [Unknown]

NARRATIVE: CASE EVENT DATE: 2017
